FAERS Safety Report 12631152 (Version 2)
Quarter: 2016Q3

REPORT INFORMATION
  Report Type: Spontaneous
  Country: US (occurrence: US)
  Receive Date: 20160808
  Receipt Date: 20160808
  Transmission Date: 20161109
  Serious: No
  Sender: FDA-Public Use
  Company Number: US-BEH-2015052511

PATIENT
  Sex: Female

DRUGS (1)
  1. HIZENTRA [Suspect]
     Active Substance: HUMAN IMMUNOGLOBULIN G
     Indication: PRODUCT USED FOR UNKNOWN INDICATION
     Dosage: ??-???-2014

REACTIONS (7)
  - Laryngitis [Unknown]
  - Asthma [Unknown]
  - Spasmodic dysphonia [Unknown]
  - Ear pain [Unknown]
  - Lung disorder [Unknown]
  - Upper-airway cough syndrome [Unknown]
  - Pyrexia [Unknown]
